FAERS Safety Report 19837865 (Version 1)
Quarter: 2021Q3

REPORT INFORMATION
  Report Type: Spontaneous
  Country: US (occurrence: US)
  Receive Date: 20210914
  Receipt Date: 20210914
  Transmission Date: 20211014
  Serious: Yes (Hospitalization)
  Sender: FDA-Public Use
  Company Number: None

PATIENT
  Age: 74 Year
  Sex: Male
  Weight: 88 kg

DRUGS (10)
  1. DARATUMUMAB [Suspect]
     Active Substance: DARATUMUMAB
  2. REVLIMID [Suspect]
     Active Substance: LENALIDOMIDE
  3. CARFILZOMIB [Suspect]
     Active Substance: CARFILZOMIB
  4. DEXAMTHASONE [Suspect]
     Active Substance: DEXAMETHASONE
  5. NITROGLYCERIN. [Concomitant]
     Active Substance: NITROGLYCERIN
  6. ALLOPURINOL. [Concomitant]
     Active Substance: ALLOPURINOL
  7. LISINOPRIL. [Concomitant]
     Active Substance: LISINOPRIL
  8. ASPIRIN. [Concomitant]
     Active Substance: ASPIRIN
  9. PRAVASTATIN. [Concomitant]
     Active Substance: PRAVASTATIN
  10. LOPERAMIDE [Concomitant]
     Active Substance: LOPERAMIDE

REACTIONS (2)
  - Femur fracture [None]
  - Fall [None]

NARRATIVE: CASE EVENT DATE: 20210904
